FAERS Safety Report 22360298 (Version 1)
Quarter: 2023Q2

REPORT INFORMATION
  Report Type: Spontaneous
  Country: US (occurrence: US)
  Receive Date: 20230524
  Receipt Date: 20230524
  Transmission Date: 20230721
  Serious: Yes (Hospitalization, Other)
  Sender: FDA-Public Use
  Company Number: US-AMERICAN REGENT INC-2023001172

PATIENT
  Age: 26 Year
  Sex: Female

DRUGS (2)
  1. VENOFER [Suspect]
     Active Substance: IRON SUCROSE
     Indication: Iron deficiency anaemia
     Dosage: 200 MILLIGRAM
     Route: 042
  2. VENOFER [Suspect]
     Active Substance: IRON SUCROSE
     Dosage: 200 MG (SEVEN DAYS AFTER FIRST INFUSION)
     Route: 042

REACTIONS (2)
  - Rhabdomyolysis [Recovered/Resolved]
  - Maternal exposure during pregnancy [Recovered/Resolved]
